FAERS Safety Report 9976378 (Version 1)
Quarter: 2014Q1

REPORT INFORMATION
  Report Type: Report from Study
  Country: US (occurrence: US)
  Receive Date: 20140306
  Receipt Date: 20140306
  Transmission Date: 20141002
  Serious: No
  Sender: FDA-Public Use
  Company Number: US-ABBVIE-13P-163-1165608-00

PATIENT
  Age: 85 Year
  Sex: Male

DRUGS (9)
  1. HUMIRA [Suspect]
     Indication: PSORIASIS
     Dates: start: 20130829
  2. VITAMIN D [Concomitant]
     Indication: PRODUCT USED FOR UNKNOWN INDICATION
  3. VITAMIN E [Concomitant]
     Indication: PRODUCT USED FOR UNKNOWN INDICATION
  4. MULTIVITAMIN [Concomitant]
     Indication: PRODUCT USED FOR UNKNOWN INDICATION
  5. CALCIUM [Concomitant]
     Indication: PRODUCT USED FOR UNKNOWN INDICATION
  6. LOSARTAN [Concomitant]
     Indication: HYPERTENSION
     Dosage: 100 MG DAILY
  7. AMLODIPINE [Concomitant]
     Indication: DIURETIC THERAPY
     Dosage: 10 MG DAILY
  8. TRAVATAN [Concomitant]
     Indication: MACULAR DEGENERATION
     Dosage: 2 GTTS RIGHT EYE EVERY MORNING
  9. COMBIGAN [Concomitant]
     Indication: MACULAR DEGENERATION
     Dosage: 1 GTT BOTH EYES TOGETHER TWICE DAILY

REACTIONS (1)
  - Pruritus [Not Recovered/Not Resolved]
